FAERS Safety Report 5324869-1 (Version None)
Quarter: 2007Q2

REPORT INFORMATION
  Report Type: 
  Country: None (occurrence: None)
  Receive Date: 20070515
  Receipt Date: 20070511
  Transmission Date: 20071010
  Serious: Yes (Hospitalization)
  Sender: FDA-Public Use
  Company Number: HQWYE540227JAN06

PATIENT
  Age: 8 Year
  Sex: Male

DRUGS (1)
  1. ADVIL [Suspect]
     Indication: EAR PAIN
     Dosage: ^ONE INTAKE^, DOSE UNSPECIFIED
     Route: 048
     Dates: start: 20051228, end: 20051228

REACTIONS (7)
  - BALANITIS [None]
  - BLISTER [None]
  - EYELID OEDEMA [None]
  - FACE OEDEMA [None]
  - PHARYNGOLARYNGEAL PAIN [None]
  - RASH [None]
  - URTICARIA [None]
